FAERS Safety Report 7890079-7 (Version None)
Quarter: 2011Q4

REPORT INFORMATION
  Report Type: 
  Country: None (occurrence: None)
  Receive Date: 20111103
  Receipt Date: 20111024
  Transmission Date: 20120403
  Serious: Yes (Other)
  Sender: FDA-Public Use
  Company Number: US-MPIJNJ-2011-04817

PATIENT
  Sex: Female

DRUGS (1)
  1. VELCADE [Suspect]
     Indication: PRODUCT USED FOR UNKNOWN INDICATION

REACTIONS (8)
  - FALL [None]
  - DIARRHOEA [None]
  - ADVERSE EVENT [None]
  - NAUSEA [None]
  - WEIGHT DECREASED [None]
  - NEUROPATHY PERIPHERAL [None]
  - DECREASED APPETITE [None]
  - DYSGEUSIA [None]
